FAERS Safety Report 18227477 (Version 1)
Quarter: 2020Q3

REPORT INFORMATION
  Report Type: Spontaneous
  Country: US (occurrence: US)
  Receive Date: 20200903
  Receipt Date: 20200903
  Transmission Date: 20201103
  Serious: No
  Sender: FDA-Public Use
  Company Number: US-FERRINGPH-2019FE07006

PATIENT
  Age: 44 Year
  Sex: Female
  Weight: 68.03 kg

DRUGS (2)
  1. BARIUM                             /00125002/ [Concomitant]
     Indication: PRODUCT USED FOR UNKNOWN INDICATION
     Route: 065
  2. PREPOPIK [Suspect]
     Active Substance: ANHYDROUS CITRIC ACID\MAGNESIUM OXIDE\SODIUM PICOSULFATE
     Indication: ENDOMETRIOSIS
     Dosage: UNK
     Route: 048
     Dates: start: 20191003, end: 20191004

REACTIONS (5)
  - Proctalgia [Unknown]
  - Urticaria [Not Recovered/Not Resolved]
  - Product use in unapproved indication [Not Recovered/Not Resolved]
  - Rash [Not Recovered/Not Resolved]
  - Rectal spasm [Unknown]

NARRATIVE: CASE EVENT DATE: 20191003
